FAERS Safety Report 15363930 (Version 2)
Quarter: 2018Q3

REPORT INFORMATION
  Report Type: Spontaneous
  Country: US (occurrence: US)
  Receive Date: 20180908
  Receipt Date: 20180929
  Transmission Date: 20181010
  Serious: No
  Sender: FDA-Public Use
  Company Number: US-009507513-1808USA008038

PATIENT
  Sex: Female

DRUGS (5)
  1. HUMIRA [Suspect]
     Active Substance: ADALIMUMAB
     Dosage: (40 MG, 1 IN 2 WEEK)
     Route: 058
  2. HUMIRA [Suspect]
     Active Substance: ADALIMUMAB
     Dosage: (40 MG, 1 IN 2 WEEK)
     Route: 058
  3. FOSAMAX [Suspect]
     Active Substance: ALENDRONATE SODIUM
     Dosage: UNKNOWN
     Route: 065
  4. HUMIRA [Suspect]
     Active Substance: ADALIMUMAB
     Indication: RHEUMATOID ARTHRITIS
     Dosage: STRENGTH: 40 MG/0.8 ML (40 MILLIGRAM, SOLUTION FOR INJECTION IN PRE?FILLED PEN) (40 MG, 1 IN 2 WEEK)
     Route: 058
  5. HUMIRA [Suspect]
     Active Substance: ADALIMUMAB
     Dosage: (40 MG, 1 IN 2 WEEK)
     Route: 058

REACTIONS (16)
  - Back injury [Recovering/Resolving]
  - Fall [Unknown]
  - Osteoarthritis [Unknown]
  - Amnesia [Unknown]
  - General physical health deterioration [Unknown]
  - Pain [Unknown]
  - Poor quality sleep [Not Recovered/Not Resolved]
  - Tooth extraction [Unknown]
  - Fatigue [Recovering/Resolving]
  - Dental caries [Unknown]
  - Foreign body in respiratory tract [Unknown]
  - Impaired healing [Recovering/Resolving]
  - Procedural pain [Unknown]
  - Asthenia [Unknown]
  - Bone density abnormal [Unknown]
  - Drug ineffective [Unknown]

NARRATIVE: CASE EVENT DATE: 2017
